FAERS Safety Report 5352907-9 (Version None)
Quarter: 2007Q2

REPORT INFORMATION
  Report Type: 
  Country: None (occurrence: None)
  Receive Date: 20070518
  Receipt Date: 20070123
  Transmission Date: 20071010
  Serious: No
  Sender: FDA-Public Use
  Company Number: TPA2007A00194

PATIENT
  Age: 68 Year
  Sex: Male
  Weight: 90.7194 kg

DRUGS (1)
  1. ROZEREM [Suspect]
     Indication: INSOMNIA
     Dosage: 8 MG, QHS, PER ORAL
     Route: 048
     Dates: start: 20060101, end: 20060101

REACTIONS (5)
  - ABNORMAL DREAMS [None]
  - ASTHENIA [None]
  - FEAR [None]
  - PAIN [None]
  - POOR QUALITY SLEEP [None]
